FAERS Safety Report 8473447-4 (Version None)
Quarter: 2012Q2

REPORT INFORMATION
  Report Type: 
  Country: None (occurrence: None)
  Receive Date: 20120625
  Receipt Date: 20120625
  Transmission Date: 20120825
  Serious: Yes (Other)
  Sender: FDA-Public Use
  Company Number: None

PATIENT
  Age: 43 Year
  Sex: Female
  Weight: 104.3273 kg

DRUGS (1)
  1. ESCITALOPRAM [Suspect]
     Indication: DEPRESSION
     Dosage: 10 MG DAY PO
     Route: 048
     Dates: start: 20120501, end: 20120626

REACTIONS (4)
  - PRODUCT SUBSTITUTION ISSUE [None]
  - DYSPEPSIA [None]
  - INSOMNIA [None]
  - ANXIETY [None]
